FAERS Safety Report 23959679 (Version 1)
Quarter: 2024Q2

REPORT INFORMATION
  Report Type: Spontaneous
  Country: US (occurrence: US)
  Receive Date: 20240611
  Receipt Date: 20240611
  Transmission Date: 20240715
  Serious: Yes (Other)
  Sender: FDA-Public Use
  Company Number: US-UCBSA-2024027469

PATIENT
  Age: 63 Year
  Sex: Male
  Weight: 170 kg

DRUGS (5)
  1. CIMZIA [Suspect]
     Active Substance: CERTOLIZUMAB PEGOL
     Indication: Psoriatic arthropathy
     Dosage: 400 MILLIGRAM, EV 4 WEEKS
     Route: 058
     Dates: start: 20240510
  2. CIMZIA [Suspect]
     Active Substance: CERTOLIZUMAB PEGOL
     Indication: Back pain
  3. CIMZIA [Suspect]
     Active Substance: CERTOLIZUMAB PEGOL
     Indication: Pain in extremity
  4. CIMZIA [Suspect]
     Active Substance: CERTOLIZUMAB PEGOL
     Indication: Off label use
  5. PRAMIPEXOLE [Concomitant]
     Active Substance: PRAMIPEXOLE\PRAMIPEXOLE DIHYDROCHLORIDE
     Indication: Product used for unknown indication
     Dosage: 3.75 MILLIGRAM, 24 HRS

REACTIONS (4)
  - Psoriatic arthropathy [Not Recovered/Not Resolved]
  - Injection site swelling [Recovered/Resolved]
  - Therapeutic product effect incomplete [Unknown]
  - Off label use [Unknown]

NARRATIVE: CASE EVENT DATE: 20240501
